FAERS Safety Report 5968982-4 (Version None)
Quarter: 2008Q4

REPORT INFORMATION
  Report Type: 
  Country: None (occurrence: None)
  Receive Date: 20081125
  Receipt Date: 20081125
  Transmission Date: 20090506
  Serious: No
  Sender: FDA-Public Use
  Company Number: None

PATIENT
  Sex: Female
  Weight: 101.1521 kg

DRUGS (1)
  1. TEGRETOL [Suspect]
     Indication: NEURALGIA
     Dosage: 100MG ONE DAILY PO
     Route: 048
     Dates: start: 20081027, end: 20081112

REACTIONS (3)
  - ARTHRALGIA [None]
  - FACE OEDEMA [None]
  - OEDEMA PERIPHERAL [None]
